FAERS Safety Report 6389885-X (Version None)
Quarter: 2009Q4

REPORT INFORMATION
  Report Type: 
  Country: None (occurrence: None)
  Receive Date: 20091006
  Receipt Date: 20090205
  Transmission Date: 20100525
  Serious: No
  Sender: FDA-Public Use
  Company Number: US-BRISTOL-MYERS SQUIBB COMPANY-14496525

PATIENT
  Age: 65 Year
  Sex: Female

DRUGS (2)
  1. AVAPRO [Suspect]
  2. ZOCOR [Concomitant]

REACTIONS (2)
  - NAUSEA [None]
  - VOMITING [None]
